FAERS Safety Report 9038878 (Version 1)
Quarter: 2013Q1

REPORT INFORMATION
  Report Type: Spontaneous
  Country: US (occurrence: None)
  Receive Date: 20130123
  Receipt Date: 20130123
  Transmission Date: 20140127
  Serious: Yes (Hospitalization)
  Sender: FDA-Public Use
  Company Number: None

PATIENT
  Age: 85 Year
  Sex: Female
  Weight: 76.66 kg

DRUGS (3)
  1. ZYLET [Suspect]
     Dates: start: 20121029
  2. BROMDAY 0.09% [Suspect]
  3. BESIVANCE [Suspect]

REACTIONS (2)
  - Dizziness [None]
  - Dysphagia [None]
